FAERS Safety Report 9201941 (Version 1)
Quarter: 2013Q2

REPORT INFORMATION
  Report Type: Spontaneous
  Country: FR (occurrence: FR)
  Receive Date: 20130401
  Receipt Date: 20130401
  Transmission Date: 20140414
  Serious: Yes (Hospitalization)
  Sender: FDA-Public Use
  Company Number: FR-ROCHE-1206865

PATIENT
  Age: 39 Year
  Sex: Female

DRUGS (8)
  1. CELLCEPT [Suspect]
     Indication: PROPHYLAXIS AGAINST TRANSPLANT REJECTION
     Route: 048
     Dates: start: 20121216
  2. ADVAGRAF [Suspect]
     Indication: PROPHYLAXIS AGAINST TRANSPLANT REJECTION
     Route: 048
     Dates: start: 20130113, end: 20130211
  3. CORTANCYL [Suspect]
     Indication: PROPHYLAXIS AGAINST TRANSPLANT REJECTION
     Route: 048
     Dates: start: 20121216, end: 20130208
  4. ROVALCYTE [Concomitant]
     Dosage: ONE DAY OF TWO
     Route: 065
     Dates: start: 20121216
  5. BACTRIM FORTE [Concomitant]
     Route: 065
     Dates: start: 20121216, end: 20130209
  6. INEXIUM [Concomitant]
     Route: 065
     Dates: start: 20121216, end: 20130209
  7. TARDYFERON [Concomitant]
     Route: 065
     Dates: start: 20121216, end: 20130208
  8. UVEDOSE [Concomitant]
     Route: 065
     Dates: start: 20121216

REACTIONS (4)
  - Face oedema [Recovered/Resolved]
  - Paraesthesia oral [Recovered/Resolved]
  - Swollen tongue [Recovered/Resolved]
  - Dyspnoea [Recovered/Resolved]
